FAERS Safety Report 21376582 (Version 1)
Quarter: 2022Q3

REPORT INFORMATION
  Report Type: Spontaneous
  Country: US (occurrence: US)
  Receive Date: 20220926
  Receipt Date: 20220926
  Transmission Date: 20221026
  Serious: No
  Sender: FDA-Public Use
  Company Number: US-BAYER-2022A133729

PATIENT
  Age: 35 Year
  Sex: Male

DRUGS (4)
  1. KOGENATE FS [Suspect]
     Active Substance: ANTIHEMOPHILIC FACTOR, HUMAN RECOMBINANT
     Dosage: 6750 IU
     Route: 042
  2. KOGENATE FS [Suspect]
     Active Substance: ANTIHEMOPHILIC FACTOR, HUMAN RECOMBINANT
     Dosage: 3 DF, 2 DOUBLE DOSE AND 1 SINGLE DOSE FOR THE LEFT ANKLE SWOLLEN TREATMENT
     Dates: start: 20220903
  3. KOGENATE FS [Suspect]
     Active Substance: ANTIHEMOPHILIC FACTOR, HUMAN RECOMBINANT
     Dosage: 3 DF, 2 DOUBLE DOSE AND 1 SINGLE DOSE FOR THE LEFT ANKLE SWOLLEN TREATMENT
     Dates: start: 20220827
  4. KOGENATE FS [Suspect]
     Active Substance: ANTIHEMOPHILIC FACTOR, HUMAN RECOMBINANT
     Dosage: 2 DF, FOR THE SWOLLEN RIGHT HAND TREATMENT
     Dates: start: 20220914

REACTIONS (3)
  - Joint swelling [None]
  - Peripheral swelling [None]
  - Joint swelling [None]

NARRATIVE: CASE EVENT DATE: 20220903
